FAERS Safety Report 17555231 (Version 1)
Quarter: 2020Q1

REPORT INFORMATION
  Report Type: Spontaneous
  Country: US (occurrence: US)
  Receive Date: 20200318
  Receipt Date: 20200318
  Transmission Date: 20200409
  Serious: No
  Sender: FDA-Public Use
  Company Number: US-MYLANLABS-2020M1024911

PATIENT
  Age: 63 Year
  Sex: Female
  Weight: 98 kg

DRUGS (1)
  1. WIXELA INHUB [Suspect]
     Active Substance: FLUTICASONE PROPIONATE\SALMETEROL XINAFOATE
     Indication: CHRONIC OBSTRUCTIVE PULMONARY DISEASE
     Dosage: 250/50 MICROGRAM, BID
     Route: 055
     Dates: start: 2019

REACTIONS (3)
  - Incorrect dose administered [Unknown]
  - Device use issue [Unknown]
  - Dyspnoea [Unknown]
